FAERS Safety Report 21450642 (Version 2)
Quarter: 2022Q4

REPORT INFORMATION
  Report Type: Spontaneous
  Country: JP (occurrence: JP)
  Receive Date: 20221013
  Receipt Date: 20221224
  Transmission Date: 20230113
  Serious: Yes (Other)
  Sender: FDA-Public Use
  Company Number: JP-AMGEN-JPNSP2022175093

PATIENT

DRUGS (3)
  1. LUMAKRAS [Suspect]
     Active Substance: SOTORASIB
     Indication: Lung neoplasm malignant
     Dosage: UNK
     Route: 048
     Dates: start: 202208, end: 2022
  2. LUMAKRAS [Suspect]
     Active Substance: SOTORASIB
     Dosage: UNK
     Route: 048
     Dates: start: 2022, end: 2022
  3. LUMAKRAS [Suspect]
     Active Substance: SOTORASIB
     Dosage: 120 MILLIGRAM
     Route: 048
     Dates: start: 2022

REACTIONS (3)
  - Hepatic function abnormal [Unknown]
  - Malaise [Unknown]
  - Diarrhoea [Unknown]

NARRATIVE: CASE EVENT DATE: 20220101
